FAERS Safety Report 9729071 (Version 1)
Quarter: 2013Q4

REPORT INFORMATION
  Report Type: Spontaneous
  Country: US (occurrence: US)
  Receive Date: 20131204
  Receipt Date: 20131204
  Transmission Date: 20140711
  Serious: Yes (Other)
  Sender: FDA-Public Use
  Company Number: CHPA2013US017614

PATIENT
  Age: 58 Year
  Sex: Female

DRUGS (3)
  1. PREVACID 24HR 15MG [Suspect]
     Indication: GASTROOESOPHAGEAL REFLUX DISEASE
     Dosage: 15 MG, QD
     Route: 048
  2. PREVACID 24HR 15MG [Suspect]
     Indication: OFF LABEL USE
  3. ZOLMITRIPTAN [Concomitant]
     Indication: MIGRAINE
     Dosage: 5 MG, PRN
     Route: 065
     Dates: start: 2013

REACTIONS (3)
  - Overweight [Recovered/Resolved]
  - Vitamin D deficiency [Not Recovered/Not Resolved]
  - Iron deficiency [Not Recovered/Not Resolved]
